FAERS Safety Report 6095634-5 (Version None)
Quarter: 2009Q1

REPORT INFORMATION
  Report Type: 
  Country: None (occurrence: None)
  Receive Date: 20090227
  Receipt Date: 20080512
  Transmission Date: 20090719
  Serious: No
  Sender: FDA-Public Use
  Company Number: A0727457A

PATIENT
  Age: 53 Year
  Sex: Female

DRUGS (6)
  1. LAMICTAL [Suspect]
     Indication: BIPOLAR DISORDER
     Dosage: 100MG TWICE PER DAY
     Route: 048
     Dates: start: 20071101
  2. COLCHICINE [Concomitant]
  3. ALEVE [Concomitant]
  4. LITHIUM [Concomitant]
  5. EFFEXOR [Concomitant]
  6. AUGMENTIN '125' [Concomitant]

REACTIONS (5)
  - GAIT DISTURBANCE [None]
  - GOUT [None]
  - RASH [None]
  - SINUSITIS [None]
  - WEIGHT DECREASED [None]
